FAERS Safety Report 6095869-1 (Version None)
Quarter: 2009Q1

REPORT INFORMATION
  Report Type: 
  Country: None (occurrence: None)
  Receive Date: 20090227
  Receipt Date: 20080702
  Transmission Date: 20090719
  Serious: No
  Sender: FDA-Public Use
  Company Number: A0735829A

PATIENT
  Age: 27 Year
  Sex: Female

DRUGS (3)
  1. LAMICTAL [Suspect]
     Indication: BIPOLAR DISORDER
     Route: 048
     Dates: start: 20070901
  2. WELLBUTRIN XL [Concomitant]
     Route: 048
  3. BIRTH CONTROL [Concomitant]

REACTIONS (1)
  - DRY SKIN [None]
